FAERS Safety Report 12838839 (Version 2)
Quarter: 2016Q4

REPORT INFORMATION
  Report Type: Spontaneous
  Country: US (occurrence: US)
  Receive Date: 20161012
  Receipt Date: 20161021
  Transmission Date: 20170207
  Serious: No
  Sender: FDA-Public Use
  Company Number: US-PFIZER INC-2016465365

PATIENT
  Age: 65 Year
  Sex: Female

DRUGS (2)
  1. FASLODEX [Suspect]
     Active Substance: FULVESTRANT
     Dosage: UNK
     Dates: start: 20161003
  2. IBRANCE [Suspect]
     Active Substance: PALBOCICLIB
     Dosage: 100 MG, UNK
     Dates: start: 20161003

REACTIONS (7)
  - Depression [Unknown]
  - Diarrhoea [Unknown]
  - Dyspnoea [Unknown]
  - Fatigue [Unknown]
  - Cough [Unknown]
  - Wheezing [Unknown]
  - Anxiety [Unknown]

NARRATIVE: CASE EVENT DATE: 2016
